FAERS Safety Report 7064796-5 (Version None)
Quarter: 2010Q4

REPORT INFORMATION
  Report Type: 
  Country: None (occurrence: None)
  Receive Date: 20101027
  Receipt Date: 20101013
  Transmission Date: 20110411
  Serious: Yes (Disabling, Other)
  Sender: FDA-Public Use
  Company Number: CA-ELI_LILLY_AND_COMPANY-CA201010002791

PATIENT
  Sex: Female

DRUGS (77)
  1. ZYPREXA [Suspect]
     Indication: DEPRESSION
     Dosage: 5 MG, 2 TABLETS AT BEDTIME
     Route: 065
     Dates: start: 20010303
  2. ZYPREXA [Suspect]
     Dosage: 10 MG, 1 TABLET AT BEDTIME
     Route: 065
     Dates: start: 20020208
  3. ZYPREXA [Suspect]
     Dosage: 7.5 MG, DAILY (1/D)
     Route: 065
     Dates: start: 20020219
  4. ZYPREXA [Suspect]
     Dosage: 7.5 MG, DAILY (1/D)
     Dates: start: 20020319
  5. ZYPREXA [Suspect]
     Dosage: 7.5 MG, DAILY (1/D) AT BEDTIME
     Route: 065
     Dates: start: 20021010
  6. ZYPREXA [Suspect]
     Dosage: 10 MG, DAILY (1/D)
     Route: 065
     Dates: start: 20040229
  7. TOPAMAX [Concomitant]
     Dosage: 25 MG, DAILY (1/D) FOR FIRST WEEK (SEVEN DAYS)
     Route: 065
     Dates: start: 20010227
  8. TOPAMAX [Concomitant]
     Dosage: 25 MG, 2/D THE SECOND WEEK
     Dates: start: 20010227
  9. TOPAMAX [Concomitant]
     Dosage: 25 MG, 3/D THE THIRD WEEK
     Dates: start: 20010227
  10. TOPAMAX [Concomitant]
     Dosage: 25 MG, 4/D THE FOURTH WEEK
     Route: 065
     Dates: start: 20010227
  11. TOPAMAX [Concomitant]
     Dosage: 25 MG, 3/D
     Route: 065
     Dates: start: 20010801
  12. EFFEXOR XR [Concomitant]
     Dosage: 225 MG, EACH MORNING
     Route: 065
     Dates: start: 20010303
  13. EFFEXOR XR [Concomitant]
     Dosage: 225 MG, EACH MORNING
     Dates: start: 20101003
  14. EFFEXOR XR [Concomitant]
     Dosage: 75 MG, DAILY (1/D)
     Route: 065
     Dates: start: 20030408
  15. EFFEXOR XR [Concomitant]
     Dosage: 150 MG, DAILY (1/D)
     Route: 065
     Dates: start: 20030415
  16. EFFEXOR XR [Concomitant]
     Dosage: 225 MG, DAILY (1/D)
     Route: 065
     Dates: start: 20050416
  17. PMS-CLONAZEPAM [Concomitant]
     Dosage: UNK, 2/D WHEN NEEDED
     Route: 065
     Dates: start: 20010303
  18. PMS-CLONAZEPAM [Concomitant]
     Dosage: 0.5 MG, HALF TABLET EVERY MORNING AND TWO TABLETS AT BEDTIME
     Dates: start: 20101003
  19. PMS-CLONAZEPAM [Concomitant]
     Dosage: 1 MG, 1 TABLET NOON WHEN NEEDED
     Route: 065
     Dates: start: 20010212
  20. PMS-CLONAZEPAM [Concomitant]
     Dosage: 0.5 MG, TWO TABLETS ONCE DAILY AS NEEDED
     Route: 065
     Dates: start: 20020319
  21. PMS-CLONAZEPAM [Concomitant]
     Dosage: 0.5 MG, ONE TABLET TWICE A DAY WHEN NEEDED
     Route: 065
     Dates: start: 20020916
  22. PMS-CLONAZEPAM [Concomitant]
     Dosage: 0.5 MG, ONE OR TWO TABLETS ONCE DAILY WHEN NEEDED
     Dates: start: 20050822
  23. RISPERDAL [Concomitant]
     Dosage: 3 MG, DAILY (1/D)
     Route: 065
     Dates: start: 20010303
  24. RISPERDAL [Concomitant]
     Dosage: 3 MG, DAILY (1/D) AT BEDTIME
     Route: 065
     Dates: start: 20020402
  25. RISPERDAL [Concomitant]
     Dosage: 2 MG, DAILY (1/D) AT BEDTIME
     Route: 065
     Dates: start: 20020409
  26. RISPERDAL [Concomitant]
     Dosage: AT BEDTIME2 MG, DAILY (1/D)
     Dates: start: 20020507
  27. RISPERDAL [Concomitant]
     Dosage: 2 MG, DAILY (1/D) AT BEDTIME
     Route: 065
     Dates: start: 20021010
  28. RISPERDAL [Concomitant]
     Dosage: 3 MG, DAILY (1/D)
     Route: 065
     Dates: start: 20030328
  29. RISPERDAL [Concomitant]
     Dosage: 3 MG, DAILY (1/D) AT BEDTIME
     Route: 065
     Dates: start: 20031121
  30. RISPERDAL [Concomitant]
     Dosage: 2 MG, DAILY (1/D)
     Route: 065
     Dates: start: 20040509
  31. RISPERDAL [Concomitant]
     Dosage: 0.5 MG, DAILY (1/D) AT BEDTIME
     Dates: start: 20040611
  32. RISPERDAL [Concomitant]
     Dosage: 3 MG, DAILY (1/D) AT BEDTIME
     Dates: start: 20050416
  33. CIPRO [Concomitant]
     Dosage: 500 MG, 2/D
     Route: 065
     Dates: start: 20010323
  34. CYTOMEL [Concomitant]
     Dosage: 25 MG, 2/D
     Route: 065
     Dates: start: 20010531
  35. CYTOMEL [Concomitant]
     Dosage: 25 UG, DAILY (1/D) FOR 2 WEEKS
     Route: 065
     Dates: start: 20060109
  36. CYTOMEL [Concomitant]
     Dosage: 25 UG, 2/D EACH MORNING
     Route: 065
  37. OXAZEPAM [Concomitant]
     Dosage: 30 MG, 1 TABLET AT BEDTIME AND MAY TAKE 1 MORE TABLET IF NEEDED AFTER 30 MINUTES
     Route: 065
     Dates: start: 20010822
  38. OXAZEPAM [Concomitant]
     Dosage: 30 MG, 2 TABLETS AT BEDTIME
     Dates: start: 20011003
  39. OXAZEPAM [Concomitant]
     Dosage: 30 MG, DAILY (1/D) AT BEDTIME
     Route: 065
     Dates: start: 20020412
  40. OXAZEPAM [Concomitant]
     Dosage: 30 MG, DAILY (1/D) AT BEDTIME
     Dates: start: 20020507
  41. OXAZEPAM [Concomitant]
     Dosage: 30 MG, DAILY (1/D) AT BEDTIME
     Route: 065
     Dates: start: 20021010
  42. OXAZEPAM [Concomitant]
     Dosage: 30 MG, AT BEDNEED WHEN NEEDED
     Dates: start: 20040326
  43. OXAZEPAM [Concomitant]
     Dosage: 30 MG, DAILY (1/D) AT BEDTIME
     Route: 065
     Dates: start: 20050902
  44. OXAZEPAM [Concomitant]
     Dosage: 30 MG, DAILY (1/D) AT BEDTIME
     Dates: start: 20051005
  45. OXAZEPAM [Concomitant]
     Dosage: 30 MG, DAILY (1/D) AT BEDTIME
     Route: 065
     Dates: start: 20051231
  46. WELLBUTRIN SR [Concomitant]
     Dosage: 150 MG, EACH MORNING
     Route: 065
     Dates: start: 20011017
  47. WELLBUTRIN SR [Concomitant]
     Dosage: 150 MG, 2/D
     Route: 065
     Dates: start: 20020113
  48. PULMICORT [Concomitant]
     Dosage: 400 UG, 1 PUFF 2/D
     Route: 065
     Dates: start: 20011026
  49. PULMICORT [Concomitant]
     Dosage: UNK, INHALE 1 PUFF 2/D (RINSE AND GARGLE AFTER USE)
     Route: 065
     Dates: start: 20040927
  50. PULMICORT [Concomitant]
     Dosage: 400 UG, INHALE 1 PUFF 2/D
     Dates: start: 20050822
  51. ALTI-FLUVOXAMINE [Concomitant]
     Dosage: 50 MG, DAILY (1/D) AT BEDTIME
     Route: 065
     Dates: start: 20011103
  52. ALTI-FLUVOXAMINE [Concomitant]
     Dosage: 100 MG, 2 TABLETS AT BEDTIME
     Dates: start: 20020324
  53. ALTI-FLUVOXAMINE [Concomitant]
     Dosage: 100 MG, 2/D AT SUPPER
     Dates: start: 20020421
  54. ALTI-FLUVOXAMINE [Concomitant]
     Dosage: 50 MG, DAILY (1/D)
     Route: 065
     Dates: start: 20021019
  55. ALTI-FLUVOXAMINE [Concomitant]
     Dosage: 100 MG, 2/D
     Dates: start: 20021019
  56. ALTI-FLUVOXAMINE [Concomitant]
     Dosage: 100 MG, 2/D
     Route: 065
     Dates: start: 20030318
  57. ALTI-FLUVOXAMINE [Concomitant]
     Dosage: 50 MG, DAILY (1/D)
     Route: 065
     Dates: start: 20030318
  58. NOVO-TRIMEL [Concomitant]
     Dosage: 800MG/160MG, 2/D
     Route: 065
     Dates: start: 20020212
  59. MACROBID [Concomitant]
     Dosage: 100 MG, 2/D
     Route: 065
     Dates: start: 20020214
  60. DEXEDRINE [Concomitant]
     Dosage: 5 MG, TAKE TWO TABLETS IN THE MORNING AND TAKE ONE TABLET NOON
     Route: 065
     Dates: start: 20020409
  61. DEXEDRINE [Concomitant]
     Dosage: 5 MG, 3/D
     Route: 065
     Dates: start: 20020624
  62. ATROVENT [Concomitant]
     Dosage: UNK, INHALE 3 PUFFS 2/D
     Route: 065
     Dates: start: 20020511
  63. ATROVENT [Concomitant]
     Dosage: UNK, INHALE 3 PUFFS 2/D
     Route: 065
     Dates: start: 20030517
  64. ATROVENT [Concomitant]
     Dosage: UNK, USE AS DIRECTED
     Route: 065
     Dates: start: 20040517
  65. ALTI-SALBUTAMOL [Concomitant]
     Dosage: UNK, AS DIRECTED BY DOCTOR
     Route: 065
     Dates: start: 20020623
  66. PMS-CIMETIDINE [Concomitant]
     Dosage: 600 MG, 2/D
     Route: 065
     Dates: start: 20030526
  67. NOVO-NORFLOXACIN [Concomitant]
     Dosage: 400 MG, 2/D
     Route: 065
     Dates: start: 20030914
  68. DICETEL [Concomitant]
     Dosage: 100 MG, 3/D
     Route: 065
     Dates: start: 20040209
  69. APO-ERYTHRO BASE [Concomitant]
     Dosage: 250 MG, 4/D
     Route: 065
     Dates: start: 20041030
  70. ALTACE [Concomitant]
     Dosage: 5 MG, DAILY (1/D)
     Route: 065
     Dates: start: 20050614
  71. ALTACE [Concomitant]
     Dosage: 10 MG, DAILY (1/D)
     Route: 065
     Dates: start: 20051108
  72. LIPITOR [Concomitant]
     Dosage: 20 MG, DAILY (1/D)
     Route: 065
     Dates: start: 20050912
  73. LIPITOR [Concomitant]
     Dosage: 20 MG, DAILY (1/D)
     Route: 065
     Dates: start: 20051118
  74. LIPITOR [Concomitant]
     Dosage: 20 MG, DAILY (1/D)
     Route: 065
     Dates: start: 20051219
  75. PARIET [Concomitant]
     Dosage: 10 MG, 2/D
     Route: 065
     Dates: start: 20050912
  76. PARIET [Concomitant]
     Dosage: 10 MG, 2/D
     Route: 065
     Dates: start: 20060109
  77. CLONAZEPAM [Concomitant]
     Dosage: 0.5 MG, 1 OR 2 TABLETS WHEN NEEDED
     Route: 065
     Dates: start: 20051015

REACTIONS (7)
  - AMNESIA [None]
  - BRAIN INJURY [None]
  - DEPRESSION [None]
  - DIABETES MELLITUS [None]
  - OFF LABEL USE [None]
  - WEIGHT INCREASED [None]
  - WHITE BLOOD CELL COUNT INCREASED [None]
